FAERS Safety Report 10133444 (Version 1)
Quarter: 2014Q2

REPORT INFORMATION
  Report Type: Spontaneous
  Country: US (occurrence: US)
  Receive Date: 20140428
  Receipt Date: 20140428
  Transmission Date: 20141212
  Serious: Yes (Other)
  Sender: FDA-Public Use
  Company Number: US-BAYER-2014-058758

PATIENT
  Sex: 0

DRUGS (1)
  1. ADEMPAS [Suspect]
     Indication: PULMONARY HYPERTENSION
     Dosage: 2 MG, TID

REACTIONS (1)
  - Haemoptysis [None]
